FAERS Safety Report 19939294 (Version 2)
Quarter: 2021Q4

REPORT INFORMATION
  Report Type: Report from Study
  Country: US (occurrence: US)
  Receive Date: 20211011
  Receipt Date: 20211229
  Transmission Date: 20220303
  Serious: Yes (Death, Other)
  Sender: FDA-Public Use
  Company Number: US-TAKEDA-2021TUS061274

PATIENT
  Sex: Female
  Weight: 52 kg

DRUGS (13)
  1. HUMAN IMMUNOGLOBULIN G [Suspect]
     Active Substance: HUMAN IMMUNOGLOBULIN G
     Indication: Myelodysplastic syndrome
     Dosage: 20 GRAM, MONTHLY
     Route: 042
     Dates: start: 20191010
  2. JAKAFI [Concomitant]
     Active Substance: RUXOLITINIB
  3. TACROLIMUS [Concomitant]
     Active Substance: TACROLIMUS
  4. PREDNISONE [Concomitant]
     Active Substance: PREDNISONE
  5. ALENDRONATE SODIUM [Concomitant]
     Active Substance: ALENDRONATE SODIUM
  6. ONDANSETRON [Concomitant]
     Active Substance: ONDANSETRON
  7. MAGNESIUM [Concomitant]
     Active Substance: MAGNESIUM
  8. ATOVAQUONE\PROGUANIL [Concomitant]
     Active Substance: ATOVAQUONE\PROGUANIL
  9. METOPROLOL SUCCINATE [Concomitant]
     Active Substance: METOPROLOL SUCCINATE
  10. FAMCICLOVIR [Concomitant]
     Active Substance: FAMCICLOVIR
  11. FLUCONAZOLE [Concomitant]
     Active Substance: FLUCONAZOLE
  12. VITAMINS [Concomitant]
     Active Substance: VITAMINS
  13. CALCIUM CARBONATE\CHOLECALCIFEROL [Concomitant]
     Active Substance: CALCIUM CARBONATE\CHOLECALCIFEROL

REACTIONS (3)
  - Death [Fatal]
  - Acute myeloid leukaemia recurrent [Not Recovered/Not Resolved]
  - Off label use [Unknown]
